FAERS Safety Report 7303370-X (Version None)
Quarter: 2011Q1

REPORT INFORMATION
  Report Type: 
  Country: None (occurrence: None)
  Receive Date: 20110221
  Receipt Date: 20110210
  Transmission Date: 20110831
  Serious: Yes (Hospitalization)
  Sender: FDA-Public Use
  Company Number: US-NOVOPROD-322023

PATIENT
  Sex: Male
  Weight: 164 kg

DRUGS (20)
  1. PREDNISONE [Concomitant]
     Indication: RENAL TRANSPLANT
  2. VICTOZA [Suspect]
     Dosage: 1.2 MG, QD
     Dates: start: 20100101, end: 20100101
  3. LASIX [Concomitant]
     Indication: PRODUCT USED FOR UNKNOWN INDICATION
  4. LOVAZA [Concomitant]
     Indication: PRODUCT USED FOR UNKNOWN INDICATION
  5. ENALAPRIL [Concomitant]
     Indication: PRODUCT USED FOR UNKNOWN INDICATION
  6. VICTOZA [Suspect]
     Indication: TYPE 2 DIABETES MELLITUS
     Dosage: 1.8 MG, QD
     Route: 058
     Dates: start: 20100101, end: 20110118
  7. COUMADIN [Concomitant]
     Indication: ATRIAL FIBRILLATION
  8. CELLCEPT                           /01275102/ [Concomitant]
     Indication: RENAL TRANSPLANT
  9. CYCLOSPORINE [Concomitant]
     Indication: RENAL TRANSPLANT
  10. LYRICA [Concomitant]
     Indication: PRODUCT USED FOR UNKNOWN INDICATION
  11. LACTULOSE [Concomitant]
     Indication: PRODUCT USED FOR UNKNOWN INDICATION
  12. ULORIC [Concomitant]
     Indication: PRODUCT USED FOR UNKNOWN INDICATION
  13. POLYETHYLENE GLYCOL [Concomitant]
     Indication: PRODUCT USED FOR UNKNOWN INDICATION
  14. NOVOLIN 70/30 [Concomitant]
     Indication: TYPE 2 DIABETES MELLITUS
     Dosage: UNK
  15. CLONAZEPAM [Concomitant]
     Indication: PRODUCT USED FOR UNKNOWN INDICATION
  16. CALCITRIOL [Concomitant]
     Indication: PRODUCT USED FOR UNKNOWN INDICATION
  17. VICTOZA [Suspect]
     Dosage: 0.6 MG, QD
     Dates: start: 20101001, end: 20100101
  18. VYTORIN [Concomitant]
     Indication: PRODUCT USED FOR UNKNOWN INDICATION
  19. NEXIUM [Concomitant]
     Indication: PRODUCT USED FOR UNKNOWN INDICATION
  20. COLCHICINE [Concomitant]
     Indication: PRODUCT USED FOR UNKNOWN INDICATION

REACTIONS (5)
  - DIARRHOEA [None]
  - ABDOMINAL PAIN [None]
  - PYREXIA [None]
  - MICTURITION DISORDER [None]
  - LIPASE INCREASED [None]
